FAERS Safety Report 4729997-7 (Version None)
Quarter: 2005Q3

REPORT INFORMATION
  Report Type: 
  Country: None (occurrence: None)
  Receive Date: 20050801
  Receipt Date: 20050714
  Transmission Date: 20060218
  Serious: Yes (Hospitalization)
  Sender: FDA-Public Use
  Company Number: US-BOEHRINGER INGELHEIM PHARMACEUTICALS, INC.-2005-BP-11830BP

PATIENT
  Sex: Male
  Weight: 87.54 kg

DRUGS (4)
  1. TIPRANAVIR / RITONAVIR CAPSULES [Suspect]
     Indication: HIV INFECTION
     Dosage: TPV 1000 MG/R ?
     Route: 048
     Dates: start: 20030408
  2. COMBIVIR [Concomitant]
     Indication: HIV INFECTION
     Dosage: 2 TABS
     Route: 048
     Dates: start: 20000505
  3. TENOFOVIR [Concomitant]
     Indication: HIV INFECTION
     Route: 048
     Dates: start: 20030408
  4. BACTRIM [Concomitant]
     Indication: INFECTION PROPHYLAXIS
     Dosage: 0.428
     Route: 048
     Dates: start: 20040211

REACTIONS (1)
  - DIVERTICULITIS [None]
